FAERS Safety Report 4331905-8 (Version None)
Quarter: 2004Q2

REPORT INFORMATION
  Report Type: 
  Country: None (occurrence: None)
  Receive Date: 20040405
  Receipt Date: 20030219
  Transmission Date: 20050107
  Serious: No
  Sender: FDA-Public Use
  Company Number: US-GLAXOSMITHKLINE-A0397343A

PATIENT
  Age: 78 Year
  Sex: Female

DRUGS (9)
  1. SEREVENT [Suspect]
     Indication: ASTHMA
     Dosage: 2PUFF TWICE PER DAY
     Route: 055
     Dates: start: 20030113, end: 20030116
  2. ACIPHEX [Concomitant]
     Dosage: 20MG TWICE PER DAY
  3. PEPCID AC [Concomitant]
  4. VERAPAMIL [Concomitant]
     Dosage: 240MG PER DAY
  5. SINGULAIR [Concomitant]
     Dosage: 10MG PER DAY
  6. UNSPECIFIED MEDICATION [Concomitant]
     Dosage: 200MG PER DAY
  7. PRAVACHOL [Concomitant]
     Dosage: 40MG PER DAY
  8. ECOTRIN [Concomitant]
  9. FLOVENT [Concomitant]
     Dosage: 2PUFF TWICE PER DAY

REACTIONS (2)
  - DYSPNOEA [None]
  - PALPITATIONS [None]
